FAERS Safety Report 4496554-X (Version None)
Quarter: 2004Q4

REPORT INFORMATION
  Report Type: 
  Country: None (occurrence: None)
  Receive Date: 20041109
  Receipt Date: 20041029
  Transmission Date: 20050328
  Serious: Yes (Hospitalization)
  Sender: FDA-Public Use
  Company Number: IT-JNJFOC-20041100006

PATIENT
  Sex: Male

DRUGS (1)
  1. RISPERDAL [Suspect]
     Dosage: WEEKLY DOSING ADMINISTRATION STARTED 2 MONTHS AGO.
     Route: 049

REACTIONS (2)
  - MUSCLE CONTRACTIONS INVOLUNTARY [None]
  - SUBDURAL HAEMATOMA [None]
